FAERS Safety Report 16880249 (Version 1)
Quarter: 2019Q4

REPORT INFORMATION
  Report Type: Spontaneous
  Country: US (occurrence: US)
  Receive Date: 20190807
  Receipt Date: 20190807
  Transmission Date: 20200122
  Serious: No
  Sender: FDA-Public Use
  Company Number: None

PATIENT
  Age: 58 Year
  Sex: Female
  Weight: 124.74 kg

DRUGS (6)
  1. ROPINEROLE [Concomitant]
     Active Substance: ROPINIROLE
  2. CLONAZEPAM. [Concomitant]
     Active Substance: CLONAZEPAM
  3. LEVOTHYROXINE. [Concomitant]
     Active Substance: LEVOTHYROXINE
  4. LAMICTAL [Concomitant]
     Active Substance: LAMOTRIGINE
  5. FYCOMPA [Suspect]
     Active Substance: PERAMPANEL
     Indication: EPILEPSY
     Dosage: ?          QUANTITY:3 PILLS;?
     Route: 048
     Dates: start: 2016, end: 20190718
  6. ATENOLOL. [Concomitant]
     Active Substance: ATENOLOL

REACTIONS (1)
  - Suicidal ideation [None]

NARRATIVE: CASE EVENT DATE: 20190714
